FAERS Safety Report 12363389 (Version 1)
Quarter: 2016Q2

REPORT INFORMATION
  Report Type: Spontaneous
  Country: US (occurrence: None)
  Receive Date: 20160512
  Receipt Date: 20160512
  Transmission Date: 20160815
  Serious: No
  Sender: FDA-Public Use
  Company Number: None

PATIENT
  Age: 53 Year
  Sex: Female

DRUGS (1)
  1. COPAXONE [Suspect]
     Active Substance: GLATIRAMER ACETATE
     Indication: PRODUCT USED FOR UNKNOWN INDICATION
     Route: 058
     Dates: start: 20070412, end: 20160412

REACTIONS (6)
  - Dysphagia [None]
  - Injection site urticaria [None]
  - Dyspnoea [None]
  - Pruritus [None]
  - Therapy cessation [None]
  - Injection site swelling [None]

NARRATIVE: CASE EVENT DATE: 20160329
